FAERS Safety Report 8057181-0 (Version None)
Quarter: 2012Q1

REPORT INFORMATION
  Report Type: 
  Country: None (occurrence: None)
  Receive Date: 20120119
  Receipt Date: 20120112
  Transmission Date: 20120608
  Serious: Yes (Other)
  Sender: FDA-Public Use
  Company Number: PHEH2012US001390

PATIENT
  Sex: Male

DRUGS (1)
  1. GILENYA [Suspect]
     Dates: start: 20110401

REACTIONS (1)
  - ANURIA [None]
